FAERS Safety Report 9374888 (Version 2)
Quarter: 2013Q3

REPORT INFORMATION
  Report Type: Spontaneous
  Country: US (occurrence: US)
  Receive Date: 20130628
  Receipt Date: 20130829
  Transmission Date: 20140515
  Serious: Yes (Hospitalization)
  Sender: FDA-Public Use
  Company Number: US-009507513-1306USA010387

PATIENT
  Sex: Female

DRUGS (8)
  1. VICTRELIS [Suspect]
     Indication: HEPATITIS C
     Dosage: 800 MG, 3 TIMES DAILY WITH MEALS
     Route: 048
     Dates: start: 201304
  2. REBETOL [Suspect]
     Route: 048
  3. PEGASYS [Suspect]
  4. OXYCODONE [Concomitant]
  5. XANAX [Concomitant]
  6. WELLBUTRIN [Concomitant]
  7. CYANOCOBALAMIN [Concomitant]
  8. GABAPENTIN [Concomitant]

REACTIONS (5)
  - Dyspnoea [Unknown]
  - Fatigue [Unknown]
  - Obstructive airways disorder [Unknown]
  - Nervous system disorder [Unknown]
  - Alopecia [Unknown]
